FAERS Safety Report 4752658-5 (Version None)
Quarter: 2005Q3

REPORT INFORMATION
  Report Type: 
  Country: None (occurrence: None)
  Receive Date: 20050824
  Receipt Date: 20050804
  Transmission Date: 20060218
  Serious: Yes (Death)
  Sender: FDA-Public Use
  Company Number: USA0508104657

PATIENT
  Age: 31 Year
  Sex: Male

DRUGS (10)
  1. CYMBALTA [Suspect]
     Indication: ANXIETY
     Dosage: 60 MG
  2. LEXAPRO [Concomitant]
  3. ZANTAC [Concomitant]
  4. SEROQUEL [Concomitant]
  5. XANAX [Concomitant]
  6. GABITRIL [Concomitant]
  7. ELAVIL [Concomitant]
  8. MIGRANAL(DIHYDROERGOTAMINE MESILATE) [Concomitant]
  9. TYLENOL W/ CODEINE NO. 3 [Concomitant]
  10. FIORICET [Concomitant]

REACTIONS (1)
  - DRUG INTERACTION [None]
